FAERS Safety Report 7233496-0 (Version None)
Quarter: 2011Q1

REPORT INFORMATION
  Report Type: 
  Country: None (occurrence: None)
  Receive Date: 20110119
  Receipt Date: 20110112
  Transmission Date: 20110831
  Serious: Yes (Death, Hospitalization, Other)
  Sender: FDA-Public Use
  Company Number: US-ALEXION-A201100008

PATIENT
  Sex: Male

DRUGS (3)
  1. SOLIRIS [Suspect]
     Dosage: 900 MG, UNK
     Route: 042
     Dates: start: 20101027, end: 20101125
  2. ALIMTA [Suspect]
     Indication: LUNG CANCER METASTATIC
     Dosage: UNK
     Dates: start: 20101124
  3. SOLIRIS [Suspect]
     Indication: PAROXYSMAL NOCTURNAL HAEMOGLOBINURIA
     Dosage: 600 MG, UNK
     Route: 042
     Dates: start: 20101020, end: 20101020

REACTIONS (4)
  - LUNG CANCER METASTATIC [None]
  - NEUTROPENIA [None]
  - STAPHYLOCOCCAL BACTERAEMIA [None]
  - CANDIDA SEPSIS [None]
